FAERS Safety Report 9383070 (Version 1)
Quarter: 2013Q3

REPORT INFORMATION
  Report Type: Spontaneous
  Country: GB (occurrence: GB)
  Receive Date: 20130704
  Receipt Date: 20130704
  Transmission Date: 20140515
  Serious: Yes (Life-Threatening, Hospitalization, Other)
  Sender: FDA-Public Use
  Company Number: GB-JNJFOC-20130616260

PATIENT
  Age: 1 Day
  Sex: Male
  Weight: 3.2 kg

DRUGS (4)
  1. NICOTINE [Suspect]
     Route: 064
  2. NICOTINE [Suspect]
     Indication: PRODUCT USED FOR UNKNOWN INDICATION
     Route: 064
  3. TEMGESIC [Suspect]
     Indication: DRUG DEPENDENCE
     Route: 064
     Dates: end: 1982
  4. TUINAL [Suspect]
     Indication: PRODUCT USED FOR UNKNOWN INDICATION
     Route: 064

REACTIONS (4)
  - Synovial cyst [Recovered/Resolved]
  - Respiratory disorder neonatal [Recovered/Resolved]
  - Laryngeal dysplasia [Recovered/Resolved]
  - Foetal exposure during pregnancy [Recovered/Resolved]
